FAERS Safety Report 6387577-4 (Version None)
Quarter: 2009Q3

REPORT INFORMATION
  Report Type: 
  Country: None (occurrence: None)
  Receive Date: 20090930
  Receipt Date: 20090924
  Transmission Date: 20100115
  Serious: Yes (Hospitalization)
  Sender: FDA-Public Use
  Company Number: SPV1-2009-01895

PATIENT
  Age: 69 Year
  Sex: Female

DRUGS (1)
  1. FOSRENOL [Suspect]
     Indication: HYPERPHOSPHATAEMIA
     Dosage: 1/4 OF A 500MG TABLET WITH EACH MEAL, ORAL; 1/2 OF A500MG TABLET WITH EACH MEAL, ORAL
     Route: 048

REACTIONS (1)
  - PNEUMONIA [None]
